FAERS Safety Report 7783586-9 (Version None)
Quarter: 2011Q3

REPORT INFORMATION
  Report Type: 
  Country: None (occurrence: None)
  Receive Date: 20110928
  Receipt Date: 20110920
  Transmission Date: 20111222
  Serious: Yes (Hospitalization)
  Sender: FDA-Public Use
  Company Number: NL-GENZYME-CLOF-1001568

PATIENT
  Sex: Male
  Weight: 75 kg

DRUGS (6)
  1. EVOLTRA [Suspect]
     Dosage: 19 MG, QD ON DAY 1
     Route: 042
     Dates: start: 20110405, end: 20110405
  2. TEMAZEPAM [Concomitant]
     Indication: INSOMNIA
     Dosage: 10 MG, QD
     Route: 048
     Dates: start: 20110404, end: 20110406
  3. EVOLTRA [Suspect]
     Indication: ACUTE MYELOID LEUKAEMIA
     Dosage: 20 MG, QDX5 ON DAYS 1-5
     Route: 065
     Dates: start: 20110305, end: 20110309
  4. CYTARABINE [Suspect]
     Indication: ACUTE MYELOID LEUKAEMIA
     Dosage: 390 MG QD ON DAYS 1-7
     Route: 065
     Dates: start: 20110305, end: 20110311
  5. CYTARABINE [Suspect]
     Dosage: 1900 MG QD
     Route: 042
     Dates: start: 20110405, end: 20110405
  6. IDARUBICIN HCL [Suspect]
     Indication: ACUTE MYELOID LEUKAEMIA
     Dosage: 24 MG, QD ON DAYS 1-3
     Route: 065
     Dates: start: 20110305, end: 20110307

REACTIONS (1)
  - NEUROTOXICITY [None]
